FAERS Safety Report 5009419-1 (Version None)
Quarter: 2006Q2

REPORT INFORMATION
  Report Type: 
  Country: None (occurrence: None)
  Receive Date: 20060524
  Receipt Date: 20060516
  Transmission Date: 20061013
  Serious: Yes (Hospitalization)
  Sender: FDA-Public Use
  Company Number: US-JNJFOC-20060504008

PATIENT
  Sex: Female
  Weight: 79 kg

DRUGS (24)
  1. HALDOL [Suspect]
     Indication: AGITATION
  2. CEP-18083 [Suspect]
     Indication: NON-HODGKIN'S LYMPHOMA
     Route: 042
  3. HYDROCHLOROTHIAZIDE [Concomitant]
  4. POTASSIUM CHLORIDE [Concomitant]
  5. XANAX [Concomitant]
  6. SYNTHROID [Concomitant]
  7. TYLENOL (GELTAB) [Concomitant]
  8. GLUCOSAMINE [Concomitant]
  9. CHONDROITIN [Concomitant]
  10. GRAPE SEED EXTRACT [Concomitant]
  11. CALCIUM GLUCONATE [Concomitant]
  12. VITAMIN SUPPLEMENTS [Concomitant]
  13. VITAMIN E [Concomitant]
  14. MAGNESIUM SULFATE [Concomitant]
  15. MULTIVITAMIN [Concomitant]
  16. MULTIVITAMIN [Concomitant]
  17. MULTIVITAMIN [Concomitant]
  18. MULTIVITAMIN [Concomitant]
  19. MULTIVITAMIN [Concomitant]
  20. MULTIVITAMIN [Concomitant]
  21. MULTIVITAMIN [Concomitant]
  22. MULTIVITAMIN [Concomitant]
  23. ALLOPURINOL [Concomitant]
  24. COMPAZINE [Concomitant]

REACTIONS (2)
  - PYREXIA [None]
  - RENAL FAILURE ACUTE [None]
